FAERS Safety Report 24116659 (Version 1)
Quarter: 2024Q3

REPORT INFORMATION
  Report Type: Spontaneous
  Country: US (occurrence: US)
  Receive Date: 20240722
  Receipt Date: 20240722
  Transmission Date: 20241017
  Serious: No
  Sender: ASTELLAS
  Company Number: US-ASTELLAS-2024US012599

PATIENT
  Age: 77 Year
  Sex: Male

DRUGS (4)
  1. MYRBETRIQ [Suspect]
     Active Substance: MIRABEGRON
     Indication: Benign prostatic hyperplasia
     Dosage: 50 MG, ONCE DAILY (FOR 6 WEEKS)
     Route: 065
     Dates: start: 20230221
  2. MYRBETRIQ [Suspect]
     Active Substance: MIRABEGRON
     Indication: Nocturia
  3. RAPAFLO [Concomitant]
     Active Substance: SILODOSIN
     Indication: Pollakiuria
     Dosage: 4 MG, ONCE DAILY (6 WEEKS)
     Route: 065
     Dates: start: 20230116
  4. RAPAFLO [Concomitant]
     Active Substance: SILODOSIN
     Indication: Prostatitis

REACTIONS (1)
  - Off label use [Unknown]

NARRATIVE: CASE EVENT DATE: 20230221
